FAERS Safety Report 10495342 (Version 1)
Quarter: 2014Q3

REPORT INFORMATION
  Report Type: Spontaneous
  Country: US (occurrence: None)
  Receive Date: 20140815
  Receipt Date: 20140815
  Transmission Date: 20150326
  Serious: Yes (Other)
  Sender: FDA-Public Use
  Company Number: ADR-2014-00374

PATIENT
  Age: 57 Year
  Sex: Male

DRUGS (2)
  1. BACLOFEN INTRATHECAL 200MCG/ML [Suspect]
     Active Substance: BACLOFEN
     Indication: MUSCLE SPASTICITY
     Dosage: 67.03MCG/DAY
  2. MORPHINE INTRATHECAL 20MG/ML [Suspect]
     Active Substance: MORPHINE
     Dosage: 6.703MG/DAY

REACTIONS (3)
  - Overdose [None]
  - Confusional state [None]
  - Lethargy [None]

NARRATIVE: CASE EVENT DATE: 20140301
